FAERS Safety Report 5835076-8 (Version None)
Quarter: 2008Q3

REPORT INFORMATION
  Report Type: 
  Country: None (occurrence: None)
  Receive Date: 20080805
  Receipt Date: 20080805
  Transmission Date: 20090109
  Serious: No
  Sender: FDA-Public Use
  Company Number: None

PATIENT
  Sex: Female
  Weight: 79.8331 kg

DRUGS (2)
  1. TREXIMET [Suspect]
     Indication: MIGRAINE
     Dosage: ONE PILL TWICE A DAY
     Dates: start: 20080730, end: 20080730
  2. TREXIMET [Suspect]
     Indication: MIGRAINE
     Dosage: ONE PILL TWICE A DAY
     Dates: start: 20080802, end: 20080802

REACTIONS (3)
  - CONDITION AGGRAVATED [None]
  - DIZZINESS [None]
  - PAIN [None]
